FAERS Safety Report 21156037 (Version 1)
Quarter: 2022Q3

REPORT INFORMATION
  Report Type: Spontaneous
  Country: US (occurrence: US)
  Receive Date: 20220801
  Receipt Date: 20220801
  Transmission Date: 20221027
  Serious: No
  Sender: FDA-Public Use
  Company Number: US-VERTEX PHARMACEUTICALS-2022-010376

PATIENT
  Sex: Male

DRUGS (12)
  1. KALYDECO [Suspect]
     Active Substance: IVACAFTOR
     Indication: Cystic fibrosis
     Dosage: 150 MG, BID
     Route: 048
     Dates: start: 20210601, end: 20220708
  2. KALYDECO [Suspect]
     Active Substance: IVACAFTOR
     Dosage: 150 MG (TWICE DAILY ON MONDAYS AND THRUSDAYS, REDUCED)
     Route: 048
     Dates: start: 20220708
  3. FAMOTIDINE [Concomitant]
     Active Substance: FAMOTIDINE
     Dosage: 10 MG TABS
  4. ALBUTEROL SULFATE [Concomitant]
     Active Substance: ALBUTEROL SULFATE
  5. SODIUM CHLORIDE [Concomitant]
     Active Substance: SODIUM CHLORIDE
     Dosage: 7%
  6. VITAMIN D3 [Concomitant]
     Active Substance: CHOLECALCIFEROL
     Dosage: 2000 UNIT CAPS
  7. ALBUTEROL [Concomitant]
     Active Substance: ALBUTEROL
     Dosage: 0.083% INHALED SOLUTION
  8. AZITHROMYCIN [Concomitant]
     Active Substance: AZITHROMYCIN
     Dosage: 250 MG TABS
  9. FLUTICASONE [Concomitant]
     Active Substance: FLUTICASONE
     Dosage: HFA 110 MCG
  10. TOBRAMYCIN [Concomitant]
     Active Substance: TOBRAMYCIN
     Dosage: 300 MG/5 ML INHALED SOLUTION
  11. PULMOZYME [Concomitant]
     Active Substance: DORNASE ALFA
     Dosage: 1 MG/ML INHALED SOLUTION
  12. MONTELUKAST [Concomitant]
     Active Substance: MONTELUKAST SODIUM
     Dosage: 5 MG CHEWABLE TABLET

REACTIONS (2)
  - Neoscytalidium infection [Unknown]
  - Candida infection [Unknown]

NARRATIVE: CASE EVENT DATE: 20220101
